FAERS Safety Report 22868046 (Version 2)
Quarter: 2023Q4

REPORT INFORMATION
  Report Type: Report from Study
  Country: AU (occurrence: AU)
  Receive Date: 20230825
  Receipt Date: 20231017
  Transmission Date: 20240110
  Serious: Yes (Hospitalization)
  Sender: FDA-Public Use
  Company Number: AU-PFIZER INC-PV202300141256

PATIENT
  Age: 68 Year
  Sex: Female
  Weight: 71 kg

DRUGS (11)
  1. ELRANATAMAB [Suspect]
     Active Substance: ELRANATAMAB
     Indication: Plasma cell myeloma
     Dosage: 76 MG, WEEKLY
     Route: 058
     Dates: start: 20230627, end: 20230811
  2. DARATUMUMAB [Suspect]
     Active Substance: DARATUMUMAB
     Indication: Plasma cell myeloma
     Dosage: 1800 MG, WEEKLY
     Route: 058
     Dates: start: 20230714, end: 20230811
  3. LENALIDOMIDE [Suspect]
     Active Substance: LENALIDOMIDE
     Indication: Plasma cell myeloma
     Dosage: 10 MG, DAILY
     Route: 048
     Dates: start: 20230714, end: 20230814
  4. DEXAMETHASONE [Suspect]
     Active Substance: DEXAMETHASONE
     Indication: Plasma cell myeloma
     Dosage: PRIOR TO DOSING OF IP, WEEKLY
     Route: 048
     Dates: start: 20230627
  5. LORATADINE [Concomitant]
     Active Substance: LORATADINE
     Indication: Prophylaxis
     Dosage: PRIOR TO DOSING OF IP, WEEKLY
     Route: 048
     Dates: start: 20230627
  6. ACETAMINOPHEN [Concomitant]
     Active Substance: ACETAMINOPHEN
     Indication: Prophylaxis
     Dosage: 1000 MG, WEEKLY
     Route: 048
     Dates: start: 20230627
  7. ONDANSETRON [Concomitant]
     Active Substance: ONDANSETRON
     Indication: Nausea
     Dosage: 8 MG, WEEKLY
     Route: 048
     Dates: start: 20230627
  8. THYROXINE [Concomitant]
     Active Substance: LEVOTHYROXINE
     Indication: Hormone replacement therapy
     Dosage: 100 MG, DAILY
     Route: 048
     Dates: start: 2016
  9. LEXAPRO [Concomitant]
     Active Substance: ESCITALOPRAM OXALATE
     Indication: Anxiety
     Dosage: 5 MG, DAILY
     Route: 048
     Dates: start: 20230712
  10. DIAZEPAM [Concomitant]
     Active Substance: DIAZEPAM
     Indication: Anxiety
     Dosage: 1 MG, DAILY
     Route: 048
     Dates: start: 20230712
  11. LYRICA [Concomitant]
     Active Substance: PREGABALIN
     Indication: Anxiety
     Dosage: 25 MG, DAILY
     Route: 048
     Dates: start: 20230712

REACTIONS (1)
  - Cytomegalovirus viraemia [Recovered/Resolved]
